FAERS Safety Report 5456237-6 (Version None)
Quarter: 2007Q3

REPORT INFORMATION
  Report Type: 
  Country: None (occurrence: None)
  Receive Date: 20070918
  Receipt Date: 20061116
  Transmission Date: 20080115
  Serious: No
  Sender: FDA-Public Use
  Company Number: US-ASTRAZENECA-2006UW24666

PATIENT
  Age: 49 Year
  Sex: Female
  Weight: 102.1 kg

DRUGS (6)
  1. SEROQUEL [Suspect]
     Indication: INSOMNIA
     Dosage: 800 MG AT NIGHT, 200 MG IN AM
     Route: 048
  2. SEROQUEL [Suspect]
     Indication: BIPOLAR DISORDER
     Dosage: 800 MG AT NIGHT, 200 MG IN AM
     Route: 048
  3. TRILEPTAL [Concomitant]
  4. WELLBUTRIN [Concomitant]
  5. ZYPREXA [Concomitant]
  6. VITAMINS [Concomitant]

REACTIONS (1)
  - NASOPHARYNGITIS [None]
